FAERS Safety Report 22738425 (Version 33)
Quarter: 2025Q4

REPORT INFORMATION
  Report Type: Spontaneous
  Country: US (occurrence: US)
  Receive Date: 20230721
  Receipt Date: 20251020
  Transmission Date: 20260118
  Serious: Yes (Other)
  Sender: PFIZER
  Company Number: US-PFIZER INC-PV202300123517

PATIENT
  Age: 79 Year
  Sex: Female
  Weight: 69.85 kg

DRUGS (5)
  1. IBRANCE [Suspect]
     Active Substance: PALBOCICLIB
     Indication: Breast cancer female
     Dosage: 125 MG, TAKE FOR 7 DAYS THEN OFF 7 DAYS
     Route: 048
     Dates: start: 20230606
  2. IBRANCE [Suspect]
     Active Substance: PALBOCICLIB
     Dosage: 125 MG, 21 DAYS ON, 7 DAYS OFF/ONE TABLET DAILY FOR 21 DAYS OF A 28-DAY CYCLE
     Route: 048
  3. IBRANCE [Suspect]
     Active Substance: PALBOCICLIB
     Dosage: 125 MG (1 TABLET), 1X/DAY
     Route: 048
  4. IBRANCE [Suspect]
     Active Substance: PALBOCICLIB
     Dosage: 125 MG
  5. IBRANCE [Suspect]
     Active Substance: PALBOCICLIB
     Dosage: 125 MG TABLET 1 QD FOR 21 DAYS THEN OFF 7 DAYS THEN REPEAT/ 3 WEEKS ON AND 1 WEEK OFF
     Route: 048

REACTIONS (26)
  - Choking [Unknown]
  - Fall [Unknown]
  - Lumbar vertebral fracture [Unknown]
  - Spinal fracture [Unknown]
  - Femur fracture [Not Recovered/Not Resolved]
  - Breast cancer recurrent [Unknown]
  - Off label use [Unknown]
  - Dysphonia [Not Recovered/Not Resolved]
  - Anxiety [Recovered/Resolved]
  - Depressed mood [Not Recovered/Not Resolved]
  - Diarrhoea [Unknown]
  - Arthritis [Unknown]
  - Insomnia [Unknown]
  - Pain [Unknown]
  - Alopecia [Unknown]
  - Depression [Unknown]
  - Gait disturbance [Unknown]
  - Haemorrhage [Unknown]
  - Dizziness [Unknown]
  - Irregular sleep wake rhythm disorder [Unknown]
  - Memory impairment [Unknown]
  - Nasopharyngitis [Unknown]
  - Hypoacusis [Unknown]
  - Illness [Not Recovered/Not Resolved]
  - Chest pain [Unknown]
  - Peripheral venous disease [Unknown]

NARRATIVE: CASE EVENT DATE: 20230101
